FAERS Safety Report 5711997-1 (Version None)
Quarter: 2008Q2

REPORT INFORMATION
  Report Type: 
  Country: None (occurrence: None)
  Receive Date: 20080416
  Receipt Date: 20080401
  Transmission Date: 20081010
  Serious: Yes (Other)
  Sender: FDA-Public Use
  Company Number: 2008S1005423

PATIENT
  Age: 17 Year
  Sex: Male

DRUGS (4)
  1. AZATHIOPRINE [Suspect]
     Indication: COLITIS
     Dosage: ORAL
     Route: 048
     Dates: start: 20070907, end: 20071219
  2. ASACOL [Suspect]
     Indication: COLITIS ULCERATIVE
     Dosage: ONCE; ORAL
     Route: 048
     Dates: start: 20070718, end: 20080221
  3. MERCAPTOPURINE [Suspect]
     Indication: COLITIS
     Dosage: 75 MG; ORAL
     Route: 048
     Dates: start: 20080102, end: 20080116
  4. PREDNISOLONE [Concomitant]

REACTIONS (1)
  - HEPATITIS [None]
